FAERS Safety Report 5940601-2 (Version None)
Quarter: 2008Q4

REPORT INFORMATION
  Report Type: 
  Country: None (occurrence: None)
  Receive Date: 20081104
  Receipt Date: 20081031
  Transmission Date: 20090506
  Serious: Yes (Other)
  Sender: FDA-Public Use
  Company Number: IN-ASTRAZENECA-2008AP08393

PATIENT
  Age: 65 Year
  Sex: Female

DRUGS (3)
  1. MEROPENEM [Suspect]
     Indication: INFECTION
     Route: 042
  2. TAMOXIFEN [Concomitant]
     Indication: BREAST CANCER
     Route: 048
  3. TRAMADOL HCL [Concomitant]

REACTIONS (3)
  - ANAPHYLACTIC SHOCK [None]
  - DIZZINESS [None]
  - HYPOTENSION [None]
